FAERS Safety Report 6973963-8 (Version None)
Quarter: 2010Q3

REPORT INFORMATION
  Report Type: 
  Country: None (occurrence: None)
  Receive Date: 20100909
  Receipt Date: 20100830
  Transmission Date: 20110219
  Serious: Yes (Hospitalization)
  Sender: FDA-Public Use
  Company Number: GXKR2010GB09884

PATIENT
  Age: 40 Year
  Sex: Male

DRUGS (5)
  1. AMITRIPTYLINE (NGX) [Suspect]
     Indication: MAJOR DEPRESSION
     Dosage: 800 MG, UNK
     Route: 065
  2. AMITRIPTYLINE (NGX) [Suspect]
     Indication: ANXIETY
     Dosage: 1.2 G, UNK
     Route: 048
  3. OLANZAPINE [Suspect]
     Indication: MAJOR DEPRESSION
     Route: 065
  4. OLANZAPINE [Suspect]
     Indication: ANXIETY
  5. ALIMEMAZINE [Suspect]
     Route: 065

REACTIONS (10)
  - ABDOMINAL DISCOMFORT [None]
  - ABDOMINAL TENDERNESS [None]
  - AGITATION [None]
  - BRUGADA SYNDROME [None]
  - INTENTION TREMOR [None]
  - MOANING [None]
  - NYSTAGMUS [None]
  - OVERDOSE [None]
  - SINUS TACHYCARDIA [None]
  - TREMOR [None]
